FAERS Safety Report 4463741-6 (Version None)
Quarter: 2004Q3

REPORT INFORMATION
  Report Type: 
  Country: None (occurrence: None)
  Receive Date: 20040929
  Receipt Date: 20040916
  Transmission Date: 20050211
  Serious: Yes (Hospitalization)
  Sender: FDA-Public Use
  Company Number: 239348

PATIENT
  Age: 83 Year
  Sex: Female

DRUGS (17)
  1. NOVONORM (REPAGLINIDE) TABLET, 0.5MG [Suspect]
     Indication: ILL-DEFINED DISORDER
     Dosage: 3, QD, PER ORAL
     Route: 048
  2. PREDNISONE [Concomitant]
  3. INIPOMP (PANTOPRAZOLE) [Concomitant]
  4. FOZITEC (FOSINOPRIL) [Concomitant]
  5. LASIX [Concomitant]
  6. HYDROCORTISONE ^ROUSSEL^ (HYDROCORTISONE HYDROGEN SUCCINATE) [Concomitant]
  7. DIGOXIN [Concomitant]
  8. FLEXICAL (AMINO ACIDS NOS, MINERALS NOS, VITAMINS NOS) [Concomitant]
  9. DIDRONEL ^AVENTIS PHARMA^ (ETIDRONATE DISODIUM) [Concomitant]
  10. IMOVANE (ZOPICLONE) [Concomitant]
  11. LORAZEPAM [Concomitant]
  12. PREVISCAN (FLUINDIONE) [Concomitant]
  13. CLAMOXYL /NET/ (AMOXICILLIN TRIHYDRATE) [Concomitant]
  14. DIPROSONE [Concomitant]
  15. COLD CREAM (BEESWAX WHITE, CETYL ESTERS WAX, PARAFFIN, LIQUID, SODIUM [Concomitant]
  16. NIFEDIPINE [Concomitant]
  17. OROCAL D (3) (CALCIUM CARBONATE, COLECALCIFEROL) [Concomitant]

REACTIONS (5)
  - DRUG INEFFECTIVE [None]
  - PHOTODERMATOSIS [None]
  - PHOTOSENSITIVITY REACTION [None]
  - SKIN DESQUAMATION [None]
  - SKIN LESION [None]
